FAERS Safety Report 12410797 (Version 1)
Quarter: 2016Q2

REPORT INFORMATION
  Report Type: Spontaneous
  Country: US (occurrence: None)
  Receive Date: 20160526
  Receipt Date: 20160526
  Transmission Date: 20160815
  Serious: Yes (Other)
  Sender: FDA-Public Use
  Company Number: None

PATIENT
  Age: 16 Year
  Sex: Male
  Weight: 56.7 kg

DRUGS (2)
  1. RAINBOW LIGHT TEEN VITAMINS [Concomitant]
  2. FLUOXETINE [Suspect]
     Active Substance: FLUOXETINE HYDROCHLORIDE
     Indication: MAJOR DEPRESSION
     Dosage: IN THE MORNING TAKEN BY MOUTH
     Route: 048

REACTIONS (2)
  - Disease recurrence [None]
  - Depression [None]

NARRATIVE: CASE EVENT DATE: 20160522
